FAERS Safety Report 14931009 (Version 1)
Quarter: 2018Q2

REPORT INFORMATION
  Report Type: Spontaneous
  Country: ES (occurrence: ES)
  Receive Date: 20180524
  Receipt Date: 20180524
  Transmission Date: 20180711
  Serious: Yes (Other)
  Sender: FDA-Public Use
  Company Number: ES-TEVA-2018-ES-895844

PATIENT
  Age: 86 Year
  Sex: Male
  Weight: 61.3 kg

DRUGS (7)
  1. OPTOVITE B12 1.000 MICROGRAMOS SOLUCI?N INYECTABLE , 5 AMPOLLAS DE 2 M [Concomitant]
     Route: 030
     Dates: start: 20170316, end: 20180227
  2. QUETIAPINA (1136A) [Concomitant]
     Active Substance: QUETIAPINE
     Route: 048
  3. ACETILSALICILICO ACIDO (176A) [Concomitant]
     Active Substance: ASPIRIN
     Dosage: 100 MILLIGRAM DAILY;
     Route: 048
  4. TRAZODONA (3160A) [Concomitant]
     Active Substance: TRAZODONE HYDROCHLORIDE
     Dosage: 50 MILLIGRAM DAILY;
     Route: 048
  5. TAMSULOSIN [Suspect]
     Active Substance: TAMSULOSIN
     Dosage: .4 MILLIGRAM DAILY;
     Route: 048
     Dates: start: 20170316, end: 20180227
  6. OMEPRAZOL (2141A) [Concomitant]
     Active Substance: OMEPRAZOLE
     Dosage: 20 MILLIGRAM DAILY;
     Route: 048
  7. ALOPURINOL (318A) [Concomitant]
     Active Substance: ALLOPURINOL
     Dosage: 300 MILLIGRAM DAILY;
     Route: 048

REACTIONS (1)
  - Syncope [Recovered/Resolved]

NARRATIVE: CASE EVENT DATE: 20180227
